FAERS Safety Report 10193781 (Version 1)
Quarter: 2014Q2

REPORT INFORMATION
  Report Type: Spontaneous
  Country: US (occurrence: US)
  Receive Date: 20140524
  Receipt Date: 20140524
  Transmission Date: 20141212
  Serious: No
  Sender: FDA-Public Use
  Company Number: US-SANOFI-AVENTIS-2013SA043676

PATIENT
  Age: 70 Year
  Sex: Female
  Weight: 68.94 kg

DRUGS (2)
  1. SOLOSTAR [Suspect]
     Indication: DEVICE THERAPY
     Dosage: START DATE: 8 YEARS
     Dates: start: 20040901
  2. LANTUS SOLOSTAR [Suspect]
     Indication: DIABETES MELLITUS
     Dosage: START DATE: 8 YEARS DOSE:17 UNIT(S)
     Route: 058
     Dates: start: 20040901

REACTIONS (3)
  - Diabetic retinopathy [Unknown]
  - Condition aggravated [Unknown]
  - Blood glucose decreased [Recovered/Resolved]
